FAERS Safety Report 7516136-2 (Version None)
Quarter: 2011Q2

REPORT INFORMATION
  Report Type: 
  Country: None (occurrence: None)
  Receive Date: 20110601
  Receipt Date: 20110511
  Transmission Date: 20111010
  Serious: Yes (Other)
  Sender: FDA-Public Use
  Company Number: CH-ROCHE-779600

PATIENT
  Age: 34 Year
  Sex: Female

DRUGS (2)
  1. CLONAZEPAM [Suspect]
     Indication: PARAESTHESIA
     Dosage: AS NEEDED
     Route: 065
     Dates: start: 20081201, end: 20100623
  2. TYSABRI [Suspect]
     Route: 065
     Dates: start: 20100526, end: 20100626

REACTIONS (2)
  - PRE-ECLAMPSIA [None]
  - PNEUMONIA [None]
